FAERS Safety Report 4752105-3 (Version None)
Quarter: 2005Q3

REPORT INFORMATION
  Report Type: 
  Country: None (occurrence: None)
  Receive Date: 20050825
  Receipt Date: 20050819
  Transmission Date: 20060218
  Serious: Yes (Life-Threatening, Hospitalization)
  Sender: FDA-Public Use
  Company Number: 2005CG01408

PATIENT
  Age: 21128 Day
  Sex: Female
  Weight: 79 kg

DRUGS (5)
  1. DIPRIVAN [Suspect]
     Indication: GENERAL ANAESTHESIA
     Route: 042
     Dates: start: 20050805, end: 20050805
  2. TRACRIUM [Suspect]
     Indication: GENERAL ANAESTHESIA
     Route: 042
     Dates: start: 20050805, end: 20050805
  3. KETALAR [Suspect]
     Indication: GENERAL ANAESTHESIA
     Route: 042
     Dates: start: 20050805, end: 20050805
  4. MIDAZOLAM HCL [Suspect]
     Indication: GENERAL ANAESTHESIA
     Route: 042
     Dates: start: 20050805, end: 20050805
  5. SUFENTA [Concomitant]
     Indication: GENERAL ANAESTHESIA
     Route: 042
     Dates: start: 20050805, end: 20050805

REACTIONS (3)
  - BRONCHOSPASM [None]
  - HYPOTENSION [None]
  - SHOCK [None]
